FAERS Safety Report 7951334-5 (Version None)
Quarter: 2011Q4

REPORT INFORMATION
  Report Type: 
  Country: None (occurrence: None)
  Receive Date: 20111201
  Receipt Date: 20111118
  Transmission Date: 20120403
  Serious: Yes (Hospitalization, Disabling, Other)
  Sender: FDA-Public Use
  Company Number: US-ENDO PHARMACEUTICALS INC.-SUTR20110002

PATIENT
  Sex: Male
  Weight: 88.53 kg

DRUGS (1)
  1. SULFAMETHOXAZOLE AND TRIMETHOPRIM [Suspect]
     Indication: KIDNEY INFECTION
     Dosage: 1600/320 MG
     Route: 048
     Dates: start: 20110305, end: 20110313

REACTIONS (8)
  - BILE DUCT OBSTRUCTION [None]
  - PANCREATITIS [None]
  - RASH ERYTHEMATOUS [None]
  - ASTHENIA [None]
  - HEPATITIS [None]
  - TOXICITY TO VARIOUS AGENTS [None]
  - BLOOD BILIRUBIN INCREASED [None]
  - WEIGHT DECREASED [None]
